FAERS Safety Report 6081291-0 (Version None)
Quarter: 2009Q1

REPORT INFORMATION
  Report Type: 
  Country: None (occurrence: None)
  Receive Date: 20090218
  Receipt Date: 20090211
  Transmission Date: 20090719
  Serious: Yes (Other)
  Sender: FDA-Public Use
  Company Number: GB-RANBAXY-2009RR-21787

PATIENT
  Sex: Female

DRUGS (2)
  1. GABAPENTIN [Suspect]
     Route: 065
  2. CYMBALTA [Suspect]
     Route: 065

REACTIONS (1)
  - SUDDEN ONSET OF SLEEP [None]
